FAERS Safety Report 4732517-4 (Version None)
Quarter: 2005Q3

REPORT INFORMATION
  Report Type: 
  Country: None (occurrence: None)
  Receive Date: 20050803
  Receipt Date: 20030108
  Transmission Date: 20060218
  Serious: Yes (Death, Life-Threatening, Hospitalization, Disabling)
  Sender: FDA-Public Use
  Company Number: GB-GLAXOSMITHKLINE-B0313668A

PATIENT
  Age: 19 Year
  Sex: Male
  Weight: 69 kg

DRUGS (4)
  1. BUSULPHAN [Suspect]
     Indication: EWING'S SARCOMA
     Dosage: 1100MGM2 CUMULATIVE DOSE
     Route: 048
     Dates: start: 20020726, end: 20020730
  2. MELPHALAN [Concomitant]
     Indication: EWING'S SARCOMA
     Dosage: 140MGM2 UNKNOWN
     Route: 042
     Dates: start: 20020725, end: 20020725
  3. RADIOTHERAPY [Concomitant]
     Dates: start: 20021126, end: 20030117
  4. STEM CELL TRANSPLANT [Concomitant]

REACTIONS (13)
  - BRONCHOPNEUMONIA [None]
  - CARDIAC ARREST [None]
  - DECREASED APPETITE [None]
  - FATIGUE [None]
  - LUNG ABSCESS [None]
  - MICTURITION URGENCY [None]
  - NAUSEA [None]
  - QUADRIPLEGIA [None]
  - RADIATION MYELOPATHY [None]
  - SEPSIS [None]
  - SPINAL CORD OEDEMA [None]
  - URINARY HESITATION [None]
  - URINARY RETENTION [None]
